FAERS Safety Report 6060556-2 (Version None)
Quarter: 2009Q1

REPORT INFORMATION
  Report Type: 
  Country: None (occurrence: None)
  Receive Date: 20090202
  Receipt Date: 20090121
  Transmission Date: 20090719
  Serious: Yes (Other)
  Sender: FDA-Public Use
  Company Number: ES-JNJFOC-20090106471

PATIENT

DRUGS (2)
  1. RISPERDAL CONSTA [Suspect]
     Dosage: 100-175 MG
     Route: 030
  2. RISPERDAL CONSTA [Suspect]
     Indication: DRUG USE FOR UNKNOWN INDICATION
     Dosage: 50-75 MG
     Route: 030

REACTIONS (2)
  - EXTRAPYRAMIDAL DISORDER [None]
  - OVERDOSE [None]
